FAERS Safety Report 15515770 (Version 1)
Quarter: 2018Q4

REPORT INFORMATION
  Report Type: Report from Study
  Country: US (occurrence: US)
  Receive Date: 20181017
  Receipt Date: 20181017
  Transmission Date: 20190205
  Serious: Yes (Other)
  Sender: FDA-Public Use
  Company Number: US-AUROBINDO-AUR-APL-2018-050058

PATIENT
  Age: 35 Year
  Sex: Male

DRUGS (2)
  1. CIPROFLOXACIN. [Suspect]
     Active Substance: CIPROFLOXACIN
     Indication: PERIORBITAL CELLULITIS
     Dosage: 400 MILLIGRAM, EVERY 12 HOURS
     Route: 042
  2. CLINDAMYCIN. [Suspect]
     Active Substance: CLINDAMYCIN
     Indication: PERIORBITAL CELLULITIS
     Dosage: 600 MILLIGRAM, EVERY 8 HOURS
     Route: 042

REACTIONS (8)
  - Drug-induced liver injury [Recovered/Resolved]
  - Blood bilirubin [Recovered/Resolved]
  - Aspartate aminotransferase [Recovered/Resolved]
  - Alanine aminotransferase [Recovered/Resolved]
  - Blood alkaline phosphatase [Recovered/Resolved]
  - Abdominal pain [Recovered/Resolved]
  - Nausea [Recovered/Resolved]
  - Fatigue [Recovered/Resolved]
